FAERS Safety Report 5914312-3 (Version None)
Quarter: 2008Q4

REPORT INFORMATION
  Report Type: 
  Country: None (occurrence: None)
  Receive Date: 20081009
  Receipt Date: 20081002
  Transmission Date: 20090506
  Serious: No
  Sender: FDA-Public Use
  Company Number: GB-WYE-G02278008

PATIENT
  Sex: Male

DRUGS (2)
  1. EFFEXOR [Suspect]
     Indication: DEPRESSION
     Dates: start: 20051201
  2. MIRTAZAPINE [Concomitant]
     Dosage: UNKNOWN

REACTIONS (2)
  - GAIT DISTURBANCE [None]
  - PARKINSON'S DISEASE [None]
